FAERS Safety Report 6268194-3 (Version None)
Quarter: 2009Q3

REPORT INFORMATION
  Report Type: 
  Country: None (occurrence: None)
  Receive Date: 20090714
  Receipt Date: 20090714
  Transmission Date: 20100115
  Serious: No
  Sender: FDA-Public Use
  Company Number: None

PATIENT
  Age: 41 Year
  Sex: Female
  Weight: 87.9978 kg

DRUGS (1)
  1. TOPIRAMATE [Suspect]
     Indication: HEADACHE

REACTIONS (4)
  - CONFUSIONAL STATE [None]
  - DYSPHEMIA [None]
  - HYPOAESTHESIA [None]
  - PARAESTHESIA [None]
